FAERS Safety Report 25792956 (Version 1)
Quarter: 2025Q3

REPORT INFORMATION
  Report Type: Report from Study
  Country: US (occurrence: US)
  Receive Date: 20250911
  Receipt Date: 20250911
  Transmission Date: 20251021
  Serious: Yes (Other)
  Sender: TAKEDA
  Company Number: US-TAKEDA-2025TUS079110

PATIENT
  Sex: Female

DRUGS (1)
  1. DEXLANSOPRAZOLE [Suspect]
     Active Substance: DEXLANSOPRAZOLE
     Indication: Product used for unknown indication

REACTIONS (6)
  - Muscle rupture [Unknown]
  - Diabetes mellitus [Unknown]
  - Rotator cuff syndrome [Unknown]
  - Cardiac disorder [Unknown]
  - Renal disorder [Unknown]
  - Pain [Unknown]
